FAERS Safety Report 6649771-4 (Version None)
Quarter: 2010Q1

REPORT INFORMATION
  Report Type: 
  Country: None (occurrence: None)
  Receive Date: 20100322
  Receipt Date: 20100311
  Transmission Date: 20100710
  Serious: Yes (Hospitalization)
  Sender: FDA-Public Use
  Company Number: 2010SP004052

PATIENT
  Age: 48 Year
  Sex: Female

DRUGS (2)
  1. PEG-INTRON [Suspect]
     Indication: HEPATITIS C
     Dosage: 150 ML;QW;SC
     Route: 058
     Dates: start: 20090713
  2. RIBAVIRIN [Suspect]
     Indication: HEPATITIS C
     Dosage: 400 MG;BID;PO
     Route: 048
     Dates: start: 20090713

REACTIONS (13)
  - ABDOMINAL PAIN UPPER [None]
  - ASTHENIA [None]
  - BLOOD CALCIUM DECREASED [None]
  - BLOOD POTASSIUM DECREASED [None]
  - BLOOD SODIUM DECREASED [None]
  - BRONCHITIS [None]
  - CHEST PAIN [None]
  - DEHYDRATION [None]
  - DYSPNOEA [None]
  - MEMORY IMPAIRMENT [None]
  - MUSCULOSKELETAL PAIN [None]
  - NECK PAIN [None]
  - VOMITING [None]
